FAERS Safety Report 26058843 (Version 1)
Quarter: 2025Q4

REPORT INFORMATION
  Report Type: Spontaneous
  Country: CA (occurrence: CA)
  Receive Date: 20251118
  Receipt Date: 20251118
  Transmission Date: 20260117
  Serious: Yes (Life-Threatening, Other)
  Sender: TEVA
  Company Number: CA-TEVA-VS-3392743

PATIENT
  Age: 2 Year
  Sex: Male
  Weight: 13 kg

DRUGS (2)
  1. CARBOPLATIN [Suspect]
     Active Substance: CARBOPLATIN
     Indication: Bone marrow conditioning regimen
     Dosage: DOSE FORM : SOLUTION INTRAVENOUS
     Route: 042
  2. THIOTEPA [Concomitant]
     Active Substance: THIOTEPA
     Indication: Product used for unknown indication
     Dosage: DOSE FORM : NOT SPECIFIED
     Route: 065

REACTIONS (2)
  - Hypophosphataemia [Recovered/Resolved]
  - Nervous system disorder [Recovered/Resolved]
